FAERS Safety Report 26193141 (Version 1)
Quarter: 2025Q4

REPORT INFORMATION
  Report Type: Spontaneous
  Country: GB (occurrence: GB)
  Receive Date: 20251223
  Receipt Date: 20251223
  Transmission Date: 20260118
  Serious: Yes (Other)
  Sender: MYLAN
  Company Number: GB-MYLANLABS-2024M1047946

PATIENT
  Age: 62 Year
  Sex: Male

DRUGS (12)
  1. CLOZARIL [Suspect]
     Active Substance: CLOZAPINE
     Indication: Schizophrenia
     Dosage: UNK
     Route: 061
  2. CLOZARIL [Suspect]
     Active Substance: CLOZAPINE
     Dosage: UNK, BID (200 MILLIGRAM ONCE IN THE MORNING AND 250 MILLIGRAM ONCE AT NIGHT)
     Route: 061
     Dates: start: 20060508, end: 20110803
  3. CLOZARIL [Suspect]
     Active Substance: CLOZAPINE
     Dosage: 450 MILLIGRAM, PM (450 MILLIGRAM NOCTE)
     Route: 061
  4. CLOZARIL [Suspect]
     Active Substance: CLOZAPINE
     Dosage: UNK, BID (100 MILLIGRAM MANE (MORNING) AND 450 MILLIGRAM NOCTE (NIGHT))
     Route: 061
  5. CLOZARIL [Suspect]
     Active Substance: CLOZAPINE
     Dosage: 450 MILLIGRAM, PM
     Route: 061
  6. CLOZARIL [Suspect]
     Active Substance: CLOZAPINE
     Dosage: 400 MILLIGRAM, PM
     Route: 061
  7. AMISULPRIDE [Suspect]
     Active Substance: AMISULPRIDE
     Indication: Product used for unknown indication
     Dosage: 400 MILLIGRAM, BID (AS CLOZAPINE AUGMENTATION)
     Dates: start: 20140904
  8. AMISULPRIDE [Suspect]
     Active Substance: AMISULPRIDE
     Dosage: 300 MILLIGRAM, BID
     Dates: start: 20140918
  9. AMISULPRIDE [Suspect]
     Active Substance: AMISULPRIDE
     Dosage: UNK, BID 100 MILLIGRAM OM (ONCE IN THE MORNING) AND 200 MILLIGRAM ON (ONCE AT NIGHT)
     Dates: start: 20150817
  10. AMISULPRIDE [Suspect]
     Active Substance: AMISULPRIDE
     Dosage: UNK, BID (100 MILLIGRAM MANE (MORNING) AND 200 MILLIGRAM NOCTE (NIGHT))
  11. AMISULPRIDE [Suspect]
     Active Substance: AMISULPRIDE
     Dosage: UNK
  12. AMISULPRIDE [Suspect]
     Active Substance: AMISULPRIDE
     Dosage: 400 MILLIGRAM, BID

REACTIONS (8)
  - Lower respiratory tract infection [Unknown]
  - Cough [Recovering/Resolving]
  - Malaise [Unknown]
  - White blood cell count decreased [Recovered/Resolved]
  - Neutrophil count decreased [Recovered/Resolved]
  - Eosinophil count decreased [Not Recovered/Not Resolved]
  - Viral infection [Unknown]
  - Oropharyngeal pain [Recovering/Resolving]

NARRATIVE: CASE EVENT DATE: 20240501
